FAERS Safety Report 4913231-9 (Version None)
Quarter: 2006Q1

REPORT INFORMATION
  Report Type: 
  Country: None (occurrence: None)
  Receive Date: 20060215
  Receipt Date: 20051013
  Transmission Date: 20060701
  Serious: Yes (Hospitalization)
  Sender: FDA-Public Use
  Company Number: US-MERCK-0510USA07028

PATIENT
  Age: 54 Year
  Sex: Female

DRUGS (1)
  1. VIOXX [Suspect]
     Route: 048
     Dates: start: 19990101, end: 20010101

REACTIONS (5)
  - ANAEMIA POSTOPERATIVE [None]
  - CARPAL TUNNEL SYNDROME [None]
  - DEEP VEIN THROMBOSIS [None]
  - MONARTHRITIS [None]
  - THROMBOPHLEBITIS [None]
